FAERS Safety Report 10179791 (Version 1)
Quarter: 2014Q2

REPORT INFORMATION
  Report Type: Spontaneous
  Country: US (occurrence: None)
  Receive Date: 20140515
  Receipt Date: 20140515
  Transmission Date: 20141212
  Serious: Yes (Hospitalization)
  Sender: FDA-Public Use
  Company Number: UTC-048441

PATIENT
  Age: 62 Year
  Sex: Female
  Weight: 53.52 kg

DRUGS (2)
  1. REMODULIN [Suspect]
     Indication: SYSTEMIC SCLEROSIS
     Dosage: (0.099 UG/KG, 1 IN 1 MIN)?
     Route: 041
     Dates: start: 20100421
  2. ADCIRCA (TADALAFIL) [Concomitant]

REACTIONS (1)
  - Pneumonia [None]
